FAERS Safety Report 21540028 (Version 1)
Quarter: 2022Q4

REPORT INFORMATION
  Report Type: Other
  Country: IN (occurrence: None)
  Receive Date: 20221102
  Receipt Date: 20221102
  Transmission Date: 20230113
  Serious: Yes (Hospitalization, Other)
  Sender: FDA-Public Use
  Company Number: IN-ROCHE-3095377

PATIENT
  Age: 60 Year
  Sex: Female

DRUGS (4)
  1. KADCYLA [Suspect]
     Active Substance: ADO-TRASTUZUMAB EMTANSINE
     Indication: Breast cancer metastatic
     Dosage: FORMULATION : INJECTION
     Route: 042
  2. KADCYLA [Suspect]
     Active Substance: ADO-TRASTUZUMAB EMTANSINE
     Indication: Breast cancer stage IV
  3. KADCYLA [Suspect]
     Active Substance: ADO-TRASTUZUMAB EMTANSINE
     Indication: Breast cancer metastatic
  4. PHESGO [Suspect]
     Active Substance: HYALURONIDASE-ZZXF\PERTUZUMAB\TRASTUZUMAB
     Indication: Breast cancer metastatic
     Dosage: FORMULATION: INJECTION, INJECTION PHESGO 1200MG/600MG (LOADING DOSE), FOLLOWED BY INJECTION PHESGO 6
     Route: 058
     Dates: start: 20220830

REACTIONS (5)
  - Rash [Unknown]
  - Thrombocytopenia [Unknown]
  - Breast cancer metastatic [Unknown]
  - Diarrhoea [Unknown]
  - Dehydration [Unknown]
